FAERS Safety Report 23464322 (Version 2)
Quarter: 2024Q1

REPORT INFORMATION
  Report Type: Spontaneous
  Country: US (occurrence: US)
  Receive Date: 20240201
  Receipt Date: 20240206
  Transmission Date: 20240409
  Serious: Yes (Death, Life-Threatening, Hospitalization)
  Sender: FDA-Public Use
  Company Number: US-SERVIER-S24000760

PATIENT

DRUGS (14)
  1. ASPARLAS [Suspect]
     Active Substance: CALASPARGASE PEGOL-MKNL
     Indication: Acute lymphocytic leukaemia
     Dosage: 4125 U, ONE DOSE, DAY 4
     Route: 042
     Dates: start: 20231202, end: 20231202
  2. CYTARABINE [Suspect]
     Active Substance: CYTARABINE
     Indication: Acute lymphocytic leukaemia
     Dosage: 70 MG, ONE DOSE
     Route: 037
     Dates: start: 20231128, end: 20231128
  3. CYTARABINE [Suspect]
     Active Substance: CYTARABINE
     Dosage: 75 MG/M2, DAYS 8-11, 15-18
     Route: 042
     Dates: start: 20240112
  4. VINCRISTINE [Suspect]
     Active Substance: VINCRISTINE
     Indication: Acute lymphocytic leukaemia
     Dosage: 1.5 MG/M2, DAYS 1,8,15,22
     Route: 042
     Dates: start: 20231129
  5. DAUNORUBICIN [Suspect]
     Active Substance: DAUNORUBICIN
     Indication: Acute lymphocytic leukaemia
     Dosage: 25 MG/M2, DAYS 1,8,15,22
     Route: 065
     Dates: start: 20231129
  6. DEXRAZOXANE [Suspect]
     Active Substance: DEXRAZOXANE
     Indication: Acute lymphocytic leukaemia
     Dosage: 250 MG/M2, DAYS 1,8,15,22
     Route: 042
     Dates: start: 20231129
  7. METHOTREXATE [Suspect]
     Active Substance: METHOTREXATE
     Indication: Acute lymphocytic leukaemia
     Dosage: 15 MG, DAYS 15,22
     Route: 037
     Dates: start: 20231227, end: 20231227
  8. NELARABINE [Suspect]
     Active Substance: NELARABINE
     Indication: Acute lymphocytic leukaemia
     Dosage: 650 MG/M2, DAYS 1-5
     Route: 042
     Dates: start: 20240105
  9. CYCLOPHOSPHAMIDE [Suspect]
     Active Substance: CYCLOPHOSPHAMIDE
     Indication: Acute lymphocytic leukaemia
     Dosage: 1000 MG/M2, DAY 8DOSE
     Route: 065
     Dates: start: 20240112, end: 20240112
  10. MERCAPTOPURINE [Suspect]
     Active Substance: MERCAPTOPURINE
     Indication: Acute lymphocytic leukaemia
     Dosage: 60 MG/M2, DAYS 8-21
     Route: 048
     Dates: start: 20240112
  11. DEXAMETHASONE [Concomitant]
     Active Substance: DEXAMETHASONE
     Indication: Acute lymphocytic leukaemia
     Dosage: 5 UNK, BID, DAYS 1-28
     Route: 048
     Dates: start: 20231129
  12. DIPHENHYDRAMINE [Concomitant]
     Active Substance: DIPHENHYDRAMINE
     Indication: Premedication
     Dosage: 50 UNK, ONE DOSE
     Route: 048
     Dates: start: 20231202, end: 20231202
  13. FAMOTIDINE [Concomitant]
     Active Substance: FAMOTIDINE
     Indication: Premedication
     Dosage: 40 MG, ONE DOSE
     Route: 048
     Dates: start: 20231202, end: 20231202
  14. MONTELUKAST [Concomitant]
     Active Substance: MONTELUKAST SODIUM
     Indication: Premedication
     Dosage: 10 MG, ONE DOSE
     Route: 048
     Dates: start: 20231202, end: 20231202

REACTIONS (11)
  - Subarachnoid haemorrhage [Fatal]
  - Pancreatitis necrotising [Not Recovered/Not Resolved]
  - Shock [Not Recovered/Not Resolved]
  - Septic shock [Not Recovered/Not Resolved]
  - Respiratory failure [Not Recovered/Not Resolved]
  - Urinary tract infection [Not Recovered/Not Resolved]
  - Acute kidney injury [Not Recovered/Not Resolved]
  - Hypoglycaemia [Unknown]
  - Pancytopenia [Not Recovered/Not Resolved]
  - Immunosuppression [Not Recovered/Not Resolved]
  - Coagulopathy [Not Recovered/Not Resolved]

NARRATIVE: CASE EVENT DATE: 20240101
